FAERS Safety Report 25344276 (Version 1)
Quarter: 2025Q2

REPORT INFORMATION
  Report Type: Spontaneous
  Country: FR (occurrence: FR)
  Receive Date: 20250521
  Receipt Date: 20250521
  Transmission Date: 20250717
  Serious: Yes (Other)
  Sender: JOHNSON AND JOHNSON
  Company Number: None

PATIENT
  Age: 69 Year
  Sex: Female
  Weight: 100 kg

DRUGS (2)
  1. XARELTO [Interacting]
     Active Substance: RIVAROXABAN
     Indication: Vascular disorder prophylaxis
     Dosage: 20 MG, QD
     Route: 048
  2. OZEMPIC [Interacting]
     Active Substance: SEMAGLUTIDE
     Indication: Type 2 diabetes mellitus
     Dosage: 1 MG, OW
     Route: 058
     Dates: start: 20241029

REACTIONS (2)
  - Coagulation time shortened [Recovered/Resolved]
  - Drug interaction [Not Recovered/Not Resolved]

NARRATIVE: CASE EVENT DATE: 20241114
